FAERS Safety Report 11126124 (Version 1)
Quarter: 2015Q2

REPORT INFORMATION
  Report Type: Spontaneous
  Country: DE (occurrence: DE)
  Receive Date: 20150520
  Receipt Date: 20150520
  Transmission Date: 20150821
  Serious: Yes (Hospitalization)
  Sender: FDA-Public Use
  Company Number: DE-SA-2015SA066169

PATIENT
  Sex: Female
  Weight: 80 kg

DRUGS (1)
  1. AUBAGIO [Suspect]
     Active Substance: TERIFLUNOMIDE
     Indication: MULTIPLE SCLEROSIS
     Route: 048
     Dates: start: 20131108

REACTIONS (2)
  - Pruritus genital [Recovering/Resolving]
  - Cervical dysplasia [Recovering/Resolving]

NARRATIVE: CASE EVENT DATE: 201504
